FAERS Safety Report 8049015-5 (Version None)
Quarter: 2012Q1

REPORT INFORMATION
  Report Type: 
  Country: None (occurrence: None)
  Receive Date: 20120110
  Receipt Date: 20111011
  Transmission Date: 20120608
  Serious: Yes (Hospitalization)
  Sender: FDA-Public Use
  Company Number: 1152833

PATIENT
  Age: 72 Year
  Sex: Female

DRUGS (1)
  1. GEMCITABINE HYDROCHLORIDE [Suspect]
     Indication: BREAST CANCER STAGE IV
     Dosage: 2500 MG MILLIGRAM(S), 21 DAY, INTRAVENOUS
     Route: 042
     Dates: start: 20101006, end: 20110411

REACTIONS (3)
  - FEELING HOT [None]
  - PAIN IN EXTREMITY [None]
  - ERYTHEMA [None]
